FAERS Safety Report 23888558 (Version 1)
Quarter: 2024Q2

REPORT INFORMATION
  Report Type: Spontaneous
  Country: US (occurrence: None)
  Receive Date: 20240522
  Receipt Date: 20240522
  Transmission Date: 20240716
  Serious: Yes (Other)
  Sender: FDA-Public Use
  Company Number: None

PATIENT
  Age: 60 Year
  Sex: 0

DRUGS (1)
  1. KESIMPTA [Suspect]
     Active Substance: OFATUMUMAB
     Indication: Multiple sclerosis
     Dosage: 20 MG AT WEEK 9, 1 AND 2 SUBCUTANEOUS?
     Route: 058
     Dates: start: 20240520, end: 20240521

REACTIONS (4)
  - Burning sensation [None]
  - Fatigue [None]
  - Chills [None]
  - Impaired work ability [None]

NARRATIVE: CASE EVENT DATE: 20240520
